FAERS Safety Report 7508872-9 (Version None)
Quarter: 2011Q2

REPORT INFORMATION
  Report Type: 
  Country: None (occurrence: None)
  Receive Date: 20110527
  Receipt Date: 20110524
  Transmission Date: 20111010
  Serious: Yes (Hospitalization)
  Sender: FDA-Public Use
  Company Number: JP-BRISTOL-MYERS SQUIBB COMPANY-15231640

PATIENT
  Age: 76 Year
  Sex: Male

DRUGS (3)
  1. ABATACEPT [Suspect]
     Indication: RHEUMATOID ARTHRITIS
     Dosage: INTERRUPTED ON 02AUG10 125MG/WK :SC 500MG/MONTH:IV
     Route: 042
     Dates: start: 20100412, end: 20100802
  2. METHOTREXATE [Suspect]
     Indication: RHEUMATOID ARTHRITIS
     Dates: start: 20100206, end: 20100801
  3. PREDNISOLONE [Concomitant]
     Dates: start: 20011011

REACTIONS (1)
  - INTERSTITIAL LUNG DISEASE [None]
